FAERS Safety Report 5062045-0 (Version None)
Quarter: 2006Q3

REPORT INFORMATION
  Report Type: 
  Country: None (occurrence: None)
  Receive Date: 20060703
  Receipt Date: 20051004
  Transmission Date: 20061208
  Serious: No
  Sender: FDA-Public Use
  Company Number: 2005S1009821

PATIENT
  Age: 49 Year
  Sex: Female

DRUGS (5)
  1. CLOZAPINE [Suspect]
     Dosage: SEE IMAGE
     Route: 048
     Dates: start: 20030201
  2. CLOZAPINE [Suspect]
     Dosage: SEE IMAGE
     Route: 048
     Dates: start: 20030201
  3. QUETIAPINE FUMARATE [Concomitant]
  4. THIAMINE [Concomitant]
  5. VITAMINS NOS/MINERALS NOS [Concomitant]

REACTIONS (1)
  - GRANULOCYTOPENIA [None]
